FAERS Safety Report 5247444-6 (Version None)
Quarter: 2007Q1

REPORT INFORMATION
  Report Type: 
  Country: None (occurrence: None)
  Receive Date: 20070227
  Receipt Date: 20070214
  Transmission Date: 20070707
  Serious: Yes (Hospitalization)
  Sender: FDA-Public Use
  Company Number: JP-BRISTOL-MYERS SQUIBB COMPANY-13684436

PATIENT
  Age: 50 Year
  Sex: Female

DRUGS (1)
  1. ENDOXAN [Suspect]
     Indication: LEUKOCYTOCLASTIC VASCULITIS
     Route: 048
     Dates: start: 20061201, end: 20070101

REACTIONS (1)
  - EPILEPSY [None]
